FAERS Safety Report 6915360-7 (Version None)
Quarter: 2010Q3

REPORT INFORMATION
  Report Type: 
  Country: None (occurrence: None)
  Receive Date: 20100809
  Receipt Date: 20091104
  Transmission Date: 20110219
  Serious: No
  Sender: FDA-Public Use
  Company Number: US-ABBOTT-09P-163-0607389-00

PATIENT
  Sex: Female

DRUGS (4)
  1. DEPAKOTE ER [Suspect]
     Indication: CONVULSION
     Dates: start: 20090326, end: 20091014
  2. DEPAKOTE ER [Suspect]
     Dates: start: 20091014, end: 20091031
  3. DEPAKOTE ER [Suspect]
     Dates: start: 20091031
  4. ASPIRIN [Suspect]
     Indication: PRODUCT USED FOR UNKNOWN INDICATION

REACTIONS (2)
  - DRUG LEVEL FLUCTUATING [None]
  - VOMITING [None]
